FAERS Safety Report 10128105 (Version 1)
Quarter: 2014Q2

REPORT INFORMATION
  Report Type: Spontaneous
  Country: BR (occurrence: BR)
  Receive Date: 20140428
  Receipt Date: 20140428
  Transmission Date: 20141212
  Serious: Yes (Other)
  Sender: FDA-Public Use
  Company Number: BR-UCBSA-119312

PATIENT
  Sex: Female

DRUGS (1)
  1. CIMZIA [Suspect]
     Indication: RHEUMATOID ARTHRITIS
     Dosage: STRENGTH: 200MG/ML, MONTHLY
     Route: 058
     Dates: end: 2014

REACTIONS (3)
  - Skin exfoliation [Not Recovered/Not Resolved]
  - Skin ulcer [Not Recovered/Not Resolved]
  - Pruritus [Not Recovered/Not Resolved]
